FAERS Safety Report 11344728 (Version 2)
Quarter: 2015Q3

REPORT INFORMATION
  Report Type: Report from Study
  Country: PL (occurrence: PL)
  Receive Date: 20150806
  Receipt Date: 20150910
  Transmission Date: 20151125
  Serious: Yes (Hospitalization)
  Sender: FDA-Public Use
  Company Number: PL-AMGEN-POLCT2015078332

PATIENT
  Age: 14 Year
  Sex: Female
  Weight: 47.5 kg

DRUGS (4)
  1. ASCORBIC ACID. [Concomitant]
     Active Substance: ASCORBIC ACID
     Dosage: 2 UNK, UNK
     Route: 048
     Dates: start: 201110
  2. CYCLONAMINE [Concomitant]
     Active Substance: ETHAMSYLATE
     Dosage: 1 UNK, UNK
     Route: 048
     Dates: start: 201110
  3. ROMIPLOSTIM [Suspect]
     Active Substance: ROMIPLOSTIM
     Indication: IMMUNE THROMBOCYTOPENIC PURPURA
     Dosage: UNK
     Route: 065
  4. EXACYL [Concomitant]
     Active Substance: TRANEXAMIC ACID
     Dosage: 2 UNK, UNK
     Route: 048
     Dates: start: 201209

REACTIONS (1)
  - Thrombocytopenia [Recovered/Resolved]

NARRATIVE: CASE EVENT DATE: 20150611
